FAERS Safety Report 20333612 (Version 2)
Quarter: 2024Q3

REPORT INFORMATION
  Report Type: Spontaneous
  Country: US (occurrence: US)
  Receive Date: 20220113
  Receipt Date: 20240717
  Transmission Date: 20241017
  Serious: No
  Sender: TAKEDA
  Company Number: US-TAKEDA-2022TUS001970

PATIENT
  Age: 74 Year
  Sex: Male

DRUGS (3)
  1. COLCRYS [Suspect]
     Active Substance: COLCHICINE
     Indication: Pulmonary fibrosis
     Dosage: UNK
     Route: 065
  2. COLCHICINE [Suspect]
     Active Substance: COLCHICINE
     Indication: Pulmonary fibrosis
     Dosage: UNK
     Route: 065
  3. COLCRYS [Suspect]
     Active Substance: COLCHICINE
     Indication: Pulmonary fibrosis
     Dosage: 0.6 MILLIGRAM
     Route: 065

REACTIONS (3)
  - Drug ineffective [Unknown]
  - Product use in unapproved indication [Unknown]
  - Product availability issue [Unknown]

NARRATIVE: CASE EVENT DATE: 20220111
